FAERS Safety Report 6992999-4 (Version None)
Quarter: 2010Q3

REPORT INFORMATION
  Report Type: 
  Country: None (occurrence: None)
  Receive Date: 20100917
  Receipt Date: 20100913
  Transmission Date: 20110219
  Serious: Yes (Death)
  Sender: FDA-Public Use
  Company Number: US-BRISTOL-MYERS SQUIBB COMPANY-15283542

PATIENT
  Age: 92 Year
  Sex: Male

DRUGS (1)
  1. ABILIFY [Suspect]
     Indication: DEMENTIA
     Dates: start: 20091001

REACTIONS (1)
  - DEATH [None]
